FAERS Safety Report 23622933 (Version 1)
Quarter: 2024Q1

REPORT INFORMATION
  Report Type: Spontaneous
  Country: US (occurrence: US)
  Receive Date: 20240312
  Receipt Date: 20240312
  Transmission Date: 20240409
  Serious: No
  Sender: FDA-Public Use
  Company Number: US-ABBVIE-5669742

PATIENT
  Age: 89 Year
  Sex: Female

DRUGS (1)
  1. RESTASIS [Suspect]
     Active Substance: CYCLOSPORINE
     Indication: Dry eye
     Dosage: FORM STRENGTH: 0.05 PERCENT
     Route: 047
     Dates: start: 202006

REACTIONS (1)
  - Eye irritation [Not Recovered/Not Resolved]

NARRATIVE: CASE EVENT DATE: 20240107
